FAERS Safety Report 7438889-4 (Version None)
Quarter: 2011Q2

REPORT INFORMATION
  Report Type: 
  Country: None (occurrence: None)
  Receive Date: 20110426
  Receipt Date: 20110420
  Transmission Date: 20111010
  Serious: Yes (Disabling, Other)
  Sender: FDA-Public Use
  Company Number: US-GENENTECH-316174

PATIENT
  Age: 71 Year
  Sex: Male

DRUGS (4)
  1. CYCLOPHOSPHAMIDE [Concomitant]
     Indication: B-CELL LYMPHOMA
  2. VINCRISTINE [Concomitant]
     Indication: B-CELL LYMPHOMA
  3. PREDNISONE [Concomitant]
     Indication: DIFFUSE LARGE B-CELL LYMPHOMA
  4. RITUXAN [Suspect]
     Indication: DIFFUSE LARGE B-CELL LYMPHOMA
     Dosage: 820 MG, Q3W
     Route: 042
     Dates: start: 20101223

REACTIONS (1)
  - HEPATIC CIRRHOSIS [None]
